FAERS Safety Report 5633711-0 (Version None)
Quarter: 2008Q1

REPORT INFORMATION
  Report Type: 
  Country: None (occurrence: None)
  Receive Date: 20080131
  Receipt Date: 20071128
  Transmission Date: 20080703
  Serious: No
  Sender: FDA-Public Use
  Company Number: 163-21880-07111552

PATIENT
  Age: 81 Year
  Sex: Male

DRUGS (13)
  1. REVLIMID [Suspect]
     Indication: MULTIPLE MYELOMA
     Dosage: 10 MG, 1 IN 1 D, ORAL ; 25 MG, 1 IN 1 D, ORAL
     Route: 048
     Dates: start: 20070914, end: 20071001
  2. REVLIMID [Suspect]
     Indication: MULTIPLE MYELOMA
     Dosage: 10 MG, 1 IN 1 D, ORAL ; 25 MG, 1 IN 1 D, ORAL
     Route: 048
     Dates: start: 20071009, end: 20071115
  3. DECADRON [Concomitant]
  4. ASAFEN (ACETYLSALICYLIC ACID) [Concomitant]
  5. ATENOLOL [Concomitant]
  6. BUMETANIDE [Concomitant]
  7. CELEBREX [Concomitant]
  8. DOCUSATE (DOCUSATE) [Concomitant]
  9. LEVAQUIN [Concomitant]
  10. NOVOLOG [Concomitant]
  11. POTASSIUM (POTASSIUM) [Concomitant]
  12. PROMETHAZINE [Concomitant]
  13. TRIAMTERENE (TRIAMTERENE) [Concomitant]

REACTIONS (1)
  - BONE MARROW FAILURE [None]
